FAERS Safety Report 7110951-5 (Version None)
Quarter: 2010Q4

REPORT INFORMATION
  Report Type: 
  Country: None (occurrence: None)
  Receive Date: 20101118
  Receipt Date: 20091007
  Transmission Date: 20110411
  Serious: No
  Sender: FDA-Public Use
  Company Number: US-TEVA-211825USA

PATIENT
  Sex: Female

DRUGS (11)
  1. ALBUTEROL SULFATE AUTOHALER [Suspect]
     Indication: ASTHMA
     Route: 055
     Dates: start: 20081101
  2. FENOFIBRATE [Concomitant]
  3. LANTUS [Concomitant]
  4. SINGULAIR [Concomitant]
  5. ELAVIL [Concomitant]
  6. METFORMIN HCL [Concomitant]
  7. MAXZIDE [Concomitant]
  8. PRILOSEC [Concomitant]
  9. EFFEXOR [Concomitant]
  10. JANUVIA [Concomitant]
  11. LAMICTAL [Concomitant]

REACTIONS (1)
  - DRUG INEFFECTIVE [None]
